FAERS Safety Report 25684841 (Version 1)
Quarter: 2025Q3

REPORT INFORMATION
  Report Type: Spontaneous
  Country: US (occurrence: None)
  Receive Date: 20250814
  Receipt Date: 20250814
  Transmission Date: 20251020
  Serious: Yes (Other)
  Sender: FDA-CTU
  Company Number: None

PATIENT
  Age: 44 Year
  Sex: Male

DRUGS (1)
  1. AVSOLA [Suspect]
     Active Substance: INFLIXIMAB-AXXQ

REACTIONS (6)
  - Adverse drug reaction [None]
  - Adverse drug reaction [None]
  - Rash [None]
  - Yellow nail syndrome [None]
  - Alopecia [None]
  - Haematochezia [None]
